FAERS Safety Report 19352301 (Version 3)
Quarter: 2021Q3

REPORT INFORMATION
  Report Type: Spontaneous
  Country: JP (occurrence: JP)
  Receive Date: 20210531
  Receipt Date: 20210720
  Transmission Date: 20211014
  Serious: Yes (Hospitalization, Other)
  Sender: FDA-Public Use
  Company Number: JP-TAKEDA-2021TUS034022

PATIENT
  Age: 55 Year
  Sex: Female
  Weight: 63 kg

DRUGS (5)
  1. MIYA?BM [Concomitant]
     Active Substance: CLOSTRIDIUM BUTYRICUM SPORES STRAIN M-55
     Indication: DIARRHOEA
     Dosage: 6 DOSAGE FORM, Q8HR
     Route: 048
     Dates: start: 20200606, end: 20200706
  2. LIALDA [Suspect]
     Active Substance: MESALAMINE
     Indication: COLITIS ULCERATIVE
     Dosage: UNK
     Route: 048
  3. LIALDA [Suspect]
     Active Substance: MESALAMINE
     Dosage: 1200 MILLIGRAM
     Route: 048
     Dates: start: 202006, end: 202007
  4. LIALDA [Suspect]
     Active Substance: MESALAMINE
     Dosage: 4800 MILLIGRAM, QD
     Route: 048
     Dates: start: 20200629, end: 20200707
  5. BIO?THREE [Concomitant]
     Active Substance: HERBALS
     Indication: DIARRHOEA
     Dosage: 1 DOSAGE FORM, Q8HR
     Route: 048
     Dates: start: 20210706

REACTIONS (1)
  - Pleurisy [Recovered/Resolved]

NARRATIVE: CASE EVENT DATE: 20200702
